FAERS Safety Report 23215400 (Version 1)
Quarter: 2023Q4

REPORT INFORMATION
  Report Type: Spontaneous
  Country: US (occurrence: US)
  Receive Date: 20231122
  Receipt Date: 20231122
  Transmission Date: 20240110
  Serious: No
  Sender: FDA-Public Use
  Company Number: US-TEVA-2023-US-2943982

PATIENT
  Age: 19 Year
  Sex: Male

DRUGS (1)
  1. QNASL [Suspect]
     Active Substance: BECLOMETHASONE DIPROPIONATE
     Indication: Hypersensitivity
     Dosage: 80 MCG, ONE PUFF PER NOSTRIL,EVERY DAY, SOMETIMES TWICE A DAY
     Route: 065
     Dates: start: 20010101

REACTIONS (2)
  - Hypersensitivity [Unknown]
  - Incorrect dose administered [Unknown]
